FAERS Safety Report 5099965-7 (Version None)
Quarter: 2006Q3

REPORT INFORMATION
  Report Type: 
  Country: None (occurrence: None)
  Receive Date: 20060906
  Receipt Date: 20060906
  Transmission Date: 20061208
  Serious: Yes (Death)
  Sender: FDA-Public Use
  Company Number: None

PATIENT
  Age: 72 Year
  Sex: Female

DRUGS (1)
  1. COUMADIN [Suspect]
     Dosage: 2.5 MG PO DAILY
     Route: 048

REACTIONS (4)
  - CEREBRAL HAEMORRHAGE [None]
  - COAGULOPATHY [None]
  - HYPOAESTHESIA [None]
  - PARAESTHESIA [None]
